FAERS Safety Report 9459039 (Version 2)
Quarter: 2013Q3

REPORT INFORMATION
  Report Type: Spontaneous
  Country: FR (occurrence: FR)
  Receive Date: 20130814
  Receipt Date: 20130930
  Transmission Date: 20140515
  Serious: Yes (Hospitalization)
  Sender: FDA-Public Use
  Company Number: FR-UCBSA-094756

PATIENT
  Age: 60 Year
  Sex: Female

DRUGS (13)
  1. CIMZIA [Suspect]
     Indication: RHEUMATOID ARTHRITIS
     Dosage: D1, D14, D28
     Dates: start: 20130516, end: 201306
  2. CIMZIA [Suspect]
     Indication: RHEUMATOID ARTHRITIS
     Dates: start: 20130627, end: 20130627
  3. METOJECT [Suspect]
     Indication: RHEUMATOID ARTHRITIS
     Route: 058
     Dates: end: 201307
  4. MABTHERA [Concomitant]
     Indication: RHEUMATOID ARTHRITIS
     Dosage: 8 COURSES, THEN SWITCHED TO CIMZIA
  5. SPECIAFOLDIN [Concomitant]
  6. CACIT VIT D [Concomitant]
  7. INEXIUM [Concomitant]
  8. CELEBREX [Concomitant]
  9. CORTANCYL [Concomitant]
  10. CEFTRIAXONE [Concomitant]
  11. GENTAMICIN [Concomitant]
  12. TAZOCILLINE [Concomitant]
  13. NOFAXIL [Concomitant]

REACTIONS (3)
  - Febrile bone marrow aplasia [Recovered/Resolved]
  - Oral herpes [Recovering/Resolving]
  - Injection site oedema [Recovered/Resolved]
